FAERS Safety Report 24090348 (Version 1)
Quarter: 2024Q3

REPORT INFORMATION
  Report Type: Spontaneous
  Country: US (occurrence: None)
  Receive Date: 20240712
  Receipt Date: 20240712
  Transmission Date: 20241016
  Serious: Yes (Hospitalization)
  Sender: Public
  Company Number: None

PATIENT
  Age: 55 Year
  Sex: Male
  Weight: 130.4 kg

DRUGS (3)
  1. SPRYCEL [Suspect]
     Active Substance: DASATINIB
     Indication: Chronic myeloid leukaemia
     Dosage: 100 MG DAILY ORAL?
     Route: 048
     Dates: start: 20240124
  2. WELLBUTRIN [Suspect]
     Active Substance: BUPROPION HYDROCHLORIDE
  3. FLOMAX [Suspect]
     Active Substance: TAMSULOSIN HYDROCHLORIDE

REACTIONS (3)
  - Vision blurred [None]
  - Retinal haemorrhage [None]
  - Foreign body in eye [None]

NARRATIVE: CASE EVENT DATE: 20240527
